APPROVED DRUG PRODUCT: GABAPENTIN
Active Ingredient: GABAPENTIN
Strength: 300MG
Dosage Form/Route: TABLET;ORAL
Application: A218491 | Product #001 | TE Code: AB2
Applicant: SCIEGEN PHARMACEUTICALS INC
Approved: Sep 19, 2025 | RLD: No | RS: No | Type: RX